FAERS Safety Report 6973694-4 (Version None)
Quarter: 2010Q3

REPORT INFORMATION
  Report Type: 
  Country: None (occurrence: None)
  Receive Date: 20100909
  Receipt Date: 20100902
  Transmission Date: 20110219
  Serious: Yes (Other)
  Sender: FDA-Public Use
  Company Number: PT-AMGEN-KDL435622

PATIENT
  Age: 66 Year
  Sex: Female
  Weight: 52 kg

DRUGS (4)
  1. NEULASTA [Suspect]
     Indication: CHEMOTHERAPY
     Route: 058
     Dates: start: 20100814, end: 20100814
  2. CYCLOPHOSPHAMIDE [Concomitant]
     Dates: start: 20100813
  3. DOXORUBICIN HYDROCHLORIDE [Concomitant]
     Dates: start: 20100813
  4. DOCETAXEL [Concomitant]
     Dates: start: 20100813

REACTIONS (3)
  - LEUKOPENIA [None]
  - NEUTROPENIA [None]
  - PYREXIA [None]
